FAERS Safety Report 13394049 (Version 1)
Quarter: 2017Q1

REPORT INFORMATION
  Report Type: Spontaneous
  Country: GB (occurrence: GB)
  Receive Date: 20170331
  Receipt Date: 20170331
  Transmission Date: 20170429
  Serious: Yes (Other)
  Sender: FDA-Public Use
  Company Number: GB-ALLERGAN-1712515US

PATIENT
  Age: 54 Year
  Sex: Female
  Weight: 98 kg

DRUGS (6)
  1. SALBUTAMOL [Concomitant]
     Active Substance: ALBUTEROL
     Dosage: TWO DOSAGE FROM AS REQUIRED
     Route: 055
     Dates: start: 20100427
  2. CITALOPRAM HYDROBROMIDE - BP [Suspect]
     Active Substance: CITALOPRAM HYDROBROMIDE
     Indication: PRODUCT USED FOR UNKNOWN INDICATION
     Dosage: UNKNOWN
     Route: 065
     Dates: start: 20170109
  3. SERTRALINE [Concomitant]
     Active Substance: SERTRALINE HYDROCHLORIDE
     Route: 065
     Dates: start: 20170315
  4. FLUOXETINE [Concomitant]
     Active Substance: FLUOXETINE HYDROCHLORIDE
     Route: 065
     Dates: start: 20160429, end: 20170109
  5. FLUTICASONE. [Concomitant]
     Active Substance: FLUTICASONE
     Route: 055
     Dates: start: 20100427, end: 20170301
  6. SIRDUPLA [Concomitant]
     Route: 055
     Dates: start: 20170301

REACTIONS (2)
  - Nightmare [Recovered/Resolved]
  - Arthralgia [Unknown]

NARRATIVE: CASE EVENT DATE: 20170315
